FAERS Safety Report 7928894-3 (Version None)
Quarter: 2011Q4

REPORT INFORMATION
  Report Type: 
  Country: None (occurrence: None)
  Receive Date: 20111118
  Receipt Date: 20111114
  Transmission Date: 20120403
  Serious: Yes (Other)
  Sender: FDA-Public Use
  Company Number: US-JNJFOC-20111008637

PATIENT
  Sex: Male
  Weight: 77.11 kg

DRUGS (2)
  1. STELARA [Suspect]
     Indication: PSORIASIS
     Route: 058
     Dates: start: 20111104
  2. STELARA [Suspect]
     Route: 058

REACTIONS (3)
  - ELECTROCARDIOGRAM ST-T CHANGE [None]
  - FEELING ABNORMAL [None]
  - HYPERTENSION [None]
